FAERS Safety Report 10608255 (Version 1)
Quarter: 2014Q4

REPORT INFORMATION
  Report Type: Spontaneous
  Country: CN (occurrence: CN)
  Receive Date: 20141125
  Receipt Date: 20141125
  Transmission Date: 20150529
  Serious: Yes (Other)
  Sender: FDA-Public Use
  Company Number: CN-ASTELLAS-2014US017780

PATIENT
  Age: 42 Year
  Sex: Male

DRUGS (9)
  1. CEFTRIAXONE. [Concomitant]
     Active Substance: CEFTRIAXONE
     Indication: ANTI-INFECTIVE THERAPY
     Dosage: UNK , UNKNOWN FREQ.
     Route: 065
  2. IMIPENEM [Concomitant]
     Active Substance: IMIPENEM
     Indication: ANTI-INFECTIVE THERAPY
     Dosage: UNK , UNKNOWN FREQ.
     Route: 065
  3. MOXIFLOXACIN [Concomitant]
     Active Substance: MOXIFLOXACIN
     Indication: ANTI-INFECTIVE THERAPY
     Dosage: UNK, UNKNOWN FREQ.
     Route: 065
  4. AMPHOTERICIN B, LIPOSOME [Concomitant]
     Active Substance: AMPHOTERICIN B
     Indication: ANTI-INFECTIVE THERAPY
     Dosage: UNK , UNKNOWN FREQ.
     Route: 065
  5. HERBAL EXTRACT NOS [Concomitant]
     Active Substance: HERBALS
     Indication: ANTI-INFECTIVE THERAPY
     Dosage: UNK , UNKNOWN FREQ.
     Route: 065
  6. TAZOBACTAM [Concomitant]
     Active Substance: TAZOBACTAM
     Indication: ANTI-INFECTIVE THERAPY
     Dosage: UNK, UNKNOWN FREQ.
     Route: 065
  7. CILASTATIN [Concomitant]
     Active Substance: CILASTATIN
     Indication: ANTI-INFECTIVE THERAPY
     Dosage: UNK , UNKNOWN FREQ.
     Route: 065
  8. HERBAL EXTRACT NOS [Concomitant]
     Active Substance: HERBALS
     Indication: ANTI-INFECTIVE THERAPY
     Dosage: UNK, UNKNOWN FREQ.
     Route: 065
  9. MYCAMINE [Suspect]
     Active Substance: MICAFUNGIN SODIUM
     Indication: ANTIFUNGAL TREATMENT
     Route: 042
     Dates: start: 20141007, end: 20141007

REACTIONS (2)
  - Tachypnoea [Recovered/Resolved]
  - Chills [Recovered/Resolved]

NARRATIVE: CASE EVENT DATE: 20141007
